FAERS Safety Report 24151746 (Version 5)
Quarter: 2024Q3

REPORT INFORMATION
  Report Type: Spontaneous
  Country: US (occurrence: US)
  Receive Date: 20240730
  Receipt Date: 20240822
  Transmission Date: 20241017
  Serious: No
  Sender: SANDOZ
  Company Number: US-SANDOZ-SDZ2024US068786

PATIENT
  Sex: Male

DRUGS (2)
  1. ZARXIO [Suspect]
     Active Substance: FILGRASTIM-SNDZ
     Dosage: 480 UG, QD
     Route: 030
     Dates: start: 20240806, end: 20240815
  2. ZARXIO [Suspect]
     Active Substance: FILGRASTIM-SNDZ
     Indication: Bladder cancer
     Dosage: 480 UG, QD
     Route: 058
     Dates: start: 20240215

REACTIONS (5)
  - Injection site pain [Unknown]
  - Needle issue [Unknown]
  - Incorrect dose administered [Unknown]
  - Pain [Unknown]
  - Injection site haemorrhage [Unknown]

NARRATIVE: CASE EVENT DATE: 20240101
